FAERS Safety Report 6360212-7 (Version None)
Quarter: 2009Q3

REPORT INFORMATION
  Report Type: 
  Country: None (occurrence: None)
  Receive Date: 20090917
  Receipt Date: 20090911
  Transmission Date: 20100115
  Serious: Yes (Other)
  Sender: FDA-Public Use
  Company Number: US-B.I. PHARMACEUTICALS,INC./RIDGEFIELD-2009-BP-10730BP

PATIENT
  Age: 54 Year
  Sex: Male

DRUGS (1)
  1. VIRAMUNE [Suspect]

REACTIONS (1)
  - HEPATOTOXICITY [None]
